FAERS Safety Report 25157873 (Version 1)
Quarter: 2025Q2

REPORT INFORMATION
  Report Type: Spontaneous
  Country: CA (occurrence: CA)
  Receive Date: 20250404
  Receipt Date: 20250404
  Transmission Date: 20250717
  Serious: Yes (Other)
  Sender: PFIZER
  Company Number: CA-PFIZER INC-PV202500038845

PATIENT
  Age: 54 Year
  Sex: Female
  Weight: 89.9 kg

DRUGS (9)
  1. OXALIPLATIN [Suspect]
     Active Substance: OXALIPLATIN
     Indication: Colon cancer
     Route: 042
     Dates: start: 20240404, end: 202410
  2. LEUCOVORIN [Suspect]
     Active Substance: LEUCOVORIN\LEUCOVORIN CALCIUM
     Indication: Colon cancer
     Dates: start: 20240404, end: 202410
  3. FLUOROURACIL [Suspect]
     Active Substance: FLUOROURACIL
     Indication: Colon cancer
     Dates: start: 20240404, end: 202410
  4. PREDNISONE [Concomitant]
     Active Substance: PREDNISONE
     Indication: Premedication
     Dates: start: 20250129, end: 20250129
  5. BENADRYL [Concomitant]
     Active Substance: DIPHENHYDRAMINE HYDROCHLORIDE
     Indication: Premedication
     Dates: start: 20250129, end: 20250129
  6. DECADRON [Concomitant]
     Active Substance: DEXAMETHASONE
  7. DILAUDID [Concomitant]
     Active Substance: HYDROMORPHONE HYDROCHLORIDE
     Route: 048
  8. ZYPREXA [Concomitant]
     Active Substance: OLANZAPINE
     Indication: Nausea
  9. ZOFRAN [Concomitant]
     Active Substance: ONDANSETRON HYDROCHLORIDE
     Dosage: ON CHEMOTHERAPY DAY, ,BR. TAKE MORNING TABLET 30-60 MIN BEFORE CHEMO
     Dates: end: 20240625

REACTIONS (13)
  - Colon cancer stage IV [Unknown]
  - Malignant neoplasm progression [Unknown]
  - Neuropathy peripheral [Unknown]
  - Hepatic encephalopathy [Unknown]
  - Varicose vein [Unknown]
  - Splenomegaly [Unknown]
  - Hypoaesthesia [Unknown]
  - Blood alkaline phosphatase increased [Unknown]
  - Eosinophil count increased [Unknown]
  - Alanine aminotransferase increased [Unknown]
  - Alanine aminotransferase abnormal [Unknown]
  - Full blood count abnormal [Unknown]
  - Off label use [Unknown]

NARRATIVE: CASE EVENT DATE: 20240101
